FAERS Safety Report 16178017 (Version 2)
Quarter: 2019Q2

REPORT INFORMATION
  Report Type: Report from Study
  Country: US (occurrence: US)
  Receive Date: 20190410
  Receipt Date: 20190418
  Transmission Date: 20190711
  Serious: Yes (Other)
  Sender: FDA-Public Use
  Company Number: US-BIOVITRUM-2019US0658

PATIENT
  Age: 1 Year
  Sex: Female
  Weight: 30.9 kg

DRUGS (16)
  1. KINERET [Suspect]
     Active Substance: ANAKINRA
     Indication: DEFICIENCY OF THE INTERLEUKIN-1 RECEPTOR ANTAGONIST
     Dosage: 1.13 MG/KG/DAY
     Dates: start: 20090716
  2. KINERET [Suspect]
     Active Substance: ANAKINRA
     Dosage: DISCHARGED HOME ON ANAKINRA 1.5 MG/KG/DAY
     Dates: start: 20090716
  3. KINERET [Suspect]
     Active Substance: ANAKINRA
     Dosage: 1.95 MG/KG/DAY (WEIGHT= 8.4 KG)
     Dates: start: 20100201
  4. KINERET [Suspect]
     Active Substance: ANAKINRA
     Dosage: PRESCRIBED ANAKINRA DOSE AT DISCHARGED: INCREASED TO 2.5 MG/KG/DAY (WEIGHT= 8.4KG)
     Dates: start: 20100201
  5. KINERET [Suspect]
     Active Substance: ANAKINRA
     Dosage: PRESCRIBED ANAKINRA DOSE AT DISCHARGED: INCREASED TO 3.5 MG/KG/DAY (WEIGHT = 11.5 KG) - CONCERN ABOU
     Dates: start: 20101018
  6. KINERET [Suspect]
     Active Substance: ANAKINRA
     Dosage: 3.13 MG/KG/DAY (WEIGHT =  14.3 KG)
     Dates: start: 20111017
  7. KINERET [Suspect]
     Active Substance: ANAKINRA
     Dosage: 3.2 MG/KG/DAY (WEIGHT = 30.9)
     Route: 058
  8. KINERET [Suspect]
     Active Substance: ANAKINRA
     Dosage: 2.85 MG/KG/DAY (WEIGHT = 11.5 KG)
     Dates: start: 20101018
  9. KINERET [Suspect]
     Active Substance: ANAKINRA
     Dosage: 3.15 MG/KG/DAY (WEIGHT = 18 KG)
     Dates: start: 20121203
  10. KINERET [Suspect]
     Active Substance: ANAKINRA
     Dosage: 2.99 MG/KG/DAY (WEIGHT = 27.4 KG)
     Dates: start: 20160707
  11. KINERET [Suspect]
     Active Substance: ANAKINRA
     Dosage: PRESCRIBE ANAKINRA DOSE AT DISCHARGED: DOING WELL, ADJUSTMENT FOR WEIGHT GAIN TO 3.5 MG/KG/DAY ( WEI
     Dates: start: 20111017
  12. KINERET [Suspect]
     Active Substance: ANAKINRA
     Dosage: PRESCRIBED ANAKINRA DOSE AT DISCHARGED: INCREASE TO 3.3 MG/KG/DAY (WEIGHT = 27.4 KG)- ADJUST BY WEIG
     Dates: start: 20160707
  13. KINERET [Suspect]
     Active Substance: ANAKINRA
     Dosage: 3.40 MG/KG/DAY
     Dates: start: 20130805
  14. KINERET [Suspect]
     Active Substance: ANAKINRA
     Dosage: PRESCRIBED ANAKINRA DOSE AT DISCHARGED ADJUST TO 3.5 MG/KG/DAY (WEIGHT = 18 KG)
     Dates: start: 20121203
  15. KINERET [Suspect]
     Active Substance: ANAKINRA
     Dosage: TO BEGIN ANAKINRA ON 8/17/2015 AT 40.3 MG/DAY AND INCREASED TO 82.1 MG/DAY
     Dates: start: 20150817
  16. KINERET [Suspect]
     Active Substance: ANAKINRA
     Dosage: 3.26 MG/KG/DAY (WEIGHT = 30.9)
     Dates: start: 20180308

REACTIONS (1)
  - Keratoconus [Not Recovered/Not Resolved]

NARRATIVE: CASE EVENT DATE: 20180101
